FAERS Safety Report 10652537 (Version 2)
Quarter: 2014Q4

REPORT INFORMATION
  Report Type: Spontaneous
  Country: US (occurrence: US)
  Receive Date: 20141215
  Receipt Date: 20141219
  Transmission Date: 20150529
  Serious: Yes (Hospitalization)
  Sender: FDA-Public Use
  Company Number: US-MALLINCKRODT-T201404315

PATIENT
  Age: 6 Month
  Sex: Male
  Weight: 9 kg

DRUGS (5)
  1. H.P. ACTHAR [Suspect]
     Active Substance: CORTICOTROPIN
     Dosage: 12 U, QD FOR 3 DAYS
     Route: 065
  2. H.P. ACTHAR [Suspect]
     Active Substance: CORTICOTROPIN
     Dosage: 30 U, BID FOR 2 WEEKS
     Route: 065
     Dates: start: 201410
  3. H.P. ACTHAR [Suspect]
     Active Substance: CORTICOTROPIN
     Indication: INFANTILE SPASMS
     Dosage: 6 U, QOD, X 3 DOSES
     Route: 065
     Dates: end: 20141123
  4. TOPAMAX [Suspect]
     Active Substance: TOPIRAMATE
     Indication: INFANTILE SPASMS
     Route: 065
  5. B6 (P5P) [Concomitant]
     Dosage: UNK
     Dates: end: 201411

REACTIONS (5)
  - Decreased appetite [Not Recovered/Not Resolved]
  - Muscle tightness [Not Recovered/Not Resolved]
  - Weight decreased [Not Recovered/Not Resolved]
  - Metabolic disorder [None]
  - Aphagia [Not Recovered/Not Resolved]

NARRATIVE: CASE EVENT DATE: 201411
